FAERS Safety Report 23918087 (Version 4)
Quarter: 2025Q3

REPORT INFORMATION
  Report Type: Report from Study
  Country: CA (occurrence: CA)
  Receive Date: 20240530
  Receipt Date: 20250820
  Transmission Date: 20251020
  Serious: Yes (Hospitalization, Other)
  Sender: TAKEDA
  Company Number: CA-TAKEDA-2024TUS052228

PATIENT
  Age: 81 Year
  Sex: Female

DRUGS (9)
  1. VEDOLIZUMAB [Suspect]
     Active Substance: VEDOLIZUMAB
     Indication: Crohn^s disease
  2. VEDOLIZUMAB [Suspect]
     Active Substance: VEDOLIZUMAB
     Dosage: 300 MILLIGRAM, Q4WEEKS
     Dates: start: 20230105
  3. VEDOLIZUMAB [Suspect]
     Active Substance: VEDOLIZUMAB
     Dosage: 300 MILLIGRAM, Q4WEEKS
  4. VEDOLIZUMAB [Suspect]
     Active Substance: VEDOLIZUMAB
     Dosage: 300 MILLIGRAM, Q4WEEKS
  5. VEDOLIZUMAB [Suspect]
     Active Substance: VEDOLIZUMAB
     Dosage: 300 MILLIGRAM, Q4WEEKS
  6. VEDOLIZUMAB [Suspect]
     Active Substance: VEDOLIZUMAB
     Dosage: 300 MILLIGRAM, Q4WEEKS
  7. PREDNISONE [Concomitant]
     Active Substance: PREDNISONE
  8. STOOL SOFTENER (DOCUSATE) [Concomitant]
     Active Substance: DOCUSATE
  9. VENOFER [Concomitant]
     Active Substance: IRON SUCROSE
     Indication: Anaemia

REACTIONS (20)
  - Pulmonary sepsis [Unknown]
  - Clostridium difficile colitis [Unknown]
  - Mitral valve incompetence [Unknown]
  - Hypotension [Unknown]
  - Anaemia [Unknown]
  - Diverticulum intestinal haemorrhagic [Unknown]
  - Pneumonia [Recovered/Resolved]
  - Dyschezia [Unknown]
  - Diarrhoea [Unknown]
  - Anal haemorrhage [Unknown]
  - Faeces soft [Unknown]
  - Anal incontinence [Unknown]
  - Fall [Unknown]
  - Abnormal faeces [Unknown]
  - Ovarian cyst [Unknown]
  - Faeces discoloured [Unknown]
  - Malaise [Unknown]
  - Asthenia [Unknown]
  - Vomiting [Unknown]
  - Nausea [Unknown]

NARRATIVE: CASE EVENT DATE: 20240516
